FAERS Safety Report 7434622-0 (Version None)
Quarter: 2011Q2

REPORT INFORMATION
  Report Type: 
  Country: None (occurrence: None)
  Receive Date: 20110421
  Receipt Date: 20110421
  Transmission Date: 20111010
  Serious: Yes (Hospitalization, Other)
  Sender: FDA-Public Use
  Company Number: None

PATIENT
  Age: 31 Year
  Sex: Female
  Weight: 74 kg

DRUGS (2)
  1. PHENTERMINE [Suspect]
     Indication: WEIGHT DECREASED
     Dosage: 30 MG DAILY PO
     Route: 048
  2. PHENDIMETRAZINE 35 MG A DAY [Suspect]
     Indication: WEIGHT DECREASED
     Dosage: 35 MG DAILY PO
     Route: 048

REACTIONS (7)
  - PLEURAL EFFUSION [None]
  - ATELECTASIS [None]
  - PULMONARY INFARCTION [None]
  - LUNG CONSOLIDATION [None]
  - LUNG DISORDER [None]
  - CHEST PAIN [None]
  - PULMONARY EMBOLISM [None]
